FAERS Safety Report 9732813 (Version 1)
Quarter: 2013Q4

REPORT INFORMATION
  Report Type: Report from Study
  Country: UA (occurrence: UA)
  Receive Date: 20131205
  Receipt Date: 20131205
  Transmission Date: 20140711
  Serious: Yes (Other)
  Sender: FDA-Public Use
  Company Number: UA-MYLANLABS-2013S1026711

PATIENT
  Sex: Female

DRUGS (2)
  1. CYCLOPHOSPHAN [Suspect]
     Indication: NEUROBLASTOMA
     Dosage: HIGH-DOSE CHEMOTHERAPY, RECEIVED AT 2-3M INTERVALS
     Route: 065
  2. TOPOTECAN [Suspect]
     Indication: NEUROBLASTOMA
     Dosage: HIGH-DOSE CHEMOTHERAPY, RECEIVED AT 2-3M INTERVALS
     Route: 065

REACTIONS (1)
  - Grand mal convulsion [Unknown]
